FAERS Safety Report 10646422 (Version 1)
Quarter: 2014Q4

REPORT INFORMATION
  Report Type: Spontaneous
  Country: US (occurrence: None)
  Receive Date: 20141203
  Receipt Date: 20141203
  Transmission Date: 20150529
  Serious: No
  Sender: FDA-Public Use
  Company Number: SPV1-2007-03682

PATIENT
  Age: 10 Year
  Sex: Female

DRUGS (3)
  1. ZOLOFT /01011401/(SERTRALINE) [Concomitant]
  2. DAYTRANA [Suspect]
     Active Substance: METHYLPHENIDATE
     Indication: ATTENTION DEFICIT/HYPERACTIVITY DISORDER
     Dosage: 30 MG, 1X/DAY, QD
     Route: 062
     Dates: start: 200610, end: 200710
  3. SINGULAIR /01362601/ (MONTELUKAST) [Concomitant]

REACTIONS (5)
  - Application site erythema [None]
  - Educational problem [None]
  - Application site discolouration [None]
  - Product quality issue [None]
  - Drug ineffective [None]

NARRATIVE: CASE EVENT DATE: 200610
